FAERS Safety Report 17035960 (Version 1)
Quarter: 2019Q4

REPORT INFORMATION
  Report Type: Spontaneous
  Country: IN (occurrence: IN)
  Receive Date: 20191115
  Receipt Date: 20191115
  Transmission Date: 20200122
  Serious: Yes (Hospitalization, Other)
  Sender: FDA-Public Use
  Company Number: IN-ACCORD-160420

PATIENT
  Age: 60 Year
  Sex: Female

DRUGS (19)
  1. PANTOPRAZOLE [Concomitant]
     Active Substance: PANTOPRAZOLE
     Dates: start: 20180902
  2. ATENOLOL/ATENOLOL HYDROCHLORIDE [Concomitant]
     Indication: HYPERTENSION
     Dosage: 1-0-0, STRENGTH: 5 MG
     Dates: start: 2013
  3. CLOPIDOGREL [Concomitant]
     Active Substance: CLOPIDOGREL BISULFATE
     Indication: ACUTE LEFT VENTRICULAR FAILURE
     Dates: start: 20180902
  4. HEPARIN [Concomitant]
     Active Substance: HEPARIN SODIUM
     Indication: ACUTE LEFT VENTRICULAR FAILURE
     Dates: start: 20180902
  5. METFORMIN [Concomitant]
     Active Substance: METFORMIN HYDROCHLORIDE
     Indication: DIABETES MELLITUS
     Dosage: 1-0-1, STRENGTH: 500 MG
     Dates: start: 2013
  6. ENALAPRIL [Concomitant]
     Active Substance: ENALAPRIL
     Indication: HYPERTENSION
     Dosage: ORALLY FOR TWO TIMES, I.E, ON THE 2ND AND 3RD DAYS AND STOPPED ON THE 4TH DAY
     Route: 048
     Dates: start: 20180902, end: 20180903
  7. CALCIUM GLUCONATE. [Concomitant]
     Active Substance: CALCIUM GLUCONATE
     Dates: start: 20180904
  8. GLYCERYL TRINITRATE [Concomitant]
     Active Substance: NITROGLYCERIN
     Dates: start: 20180902
  9. FUROSEMIDE. [Interacting]
     Active Substance: FUROSEMIDE
     Indication: MYOCARDIAL ISCHAEMIA
     Dates: start: 20180902, end: 20180907
  10. FUROSEMIDE. [Suspect]
     Active Substance: FUROSEMIDE
     Indication: ACUTE LEFT VENTRICULAR FAILURE
     Dosage: RECEIVED TILL 07-SEP-2018
     Dates: start: 20180902
  11. ACETYLSALICYLIC ACID [Interacting]
     Active Substance: ASPIRIN
     Indication: ACUTE LEFT VENTRICULAR FAILURE
     Dates: start: 20180902, end: 20180907
  12. INSULIN BOVINE [Concomitant]
     Indication: TYPE 2 DIABETES MELLITUS
     Dates: start: 20180902
  13. ATORVASTATIN [Concomitant]
     Active Substance: ATORVASTATIN
     Indication: MYOCARDIAL ISCHAEMIA
     Dates: start: 20180902
  14. AMLODIPINE [Concomitant]
     Active Substance: AMLODIPINE BESYLATE
     Indication: HYPERTENSION
     Dosage: 1-0-0, STRENGTH: 5 MG
     Dates: start: 2013
  15. CLOPIDOGREL [Concomitant]
     Active Substance: CLOPIDOGREL BISULFATE
     Indication: MYOCARDIAL ISCHAEMIA
     Dates: start: 20180902
  16. ATORVASTATIN [Concomitant]
     Active Substance: ATORVASTATIN
     Indication: ACUTE LEFT VENTRICULAR FAILURE
     Dates: start: 20180902
  17. HEPARIN [Concomitant]
     Active Substance: HEPARIN SODIUM
     Indication: MYOCARDIAL ISCHAEMIA
     Dates: start: 20180902
  18. ASTHALIN [Concomitant]
     Active Substance: ALBUTEROL
     Dosage: NEBULIZER
     Route: 055
     Dates: start: 20180904
  19. ACETYLSALICYLIC ACID [Interacting]
     Active Substance: ASPIRIN
     Indication: MYOCARDIAL ISCHAEMIA
     Dates: start: 20180902, end: 20180907

REACTIONS (2)
  - Drug interaction [Unknown]
  - Chronic kidney disease [Unknown]

NARRATIVE: CASE EVENT DATE: 201809
